FAERS Safety Report 6495425-7 (Version None)
Quarter: 2009Q4

REPORT INFORMATION
  Report Type: 
  Country: None (occurrence: None)
  Receive Date: 20091214
  Receipt Date: 20090630
  Transmission Date: 20100525
  Serious: Yes (Hospitalization)
  Sender: FDA-Public Use
  Company Number: US-BRISTOL-MYERS SQUIBB COMPANY-14670582

PATIENT
  Age: 15 Year
  Sex: Male

DRUGS (5)
  1. ABILIFY [Suspect]
     Indication: OBSESSIVE-COMPULSIVE DISORDER
     Dosage: INCREASES TO 5 MG AND 10 MG
     Route: 048
     Dates: start: 20090223
  2. ABILIFY [Suspect]
     Indication: MAJOR DEPRESSION
     Dosage: INCREASES TO 5 MG AND 10 MG
     Route: 048
     Dates: start: 20090223
  3. ABILIFY [Suspect]
     Indication: SUICIDAL IDEATION
     Dosage: INCREASES TO 5 MG AND 10 MG
     Route: 048
     Dates: start: 20090223
  4. FLUVOXAMINE MALEATE [Suspect]
     Indication: OBSESSIVE-COMPULSIVE DISORDER
     Dates: start: 20090112
  5. FLUVOXAMINE MALEATE [Suspect]
     Indication: DEPRESSION
     Dates: start: 20090112

REACTIONS (2)
  - LIVER FUNCTION TEST ABNORMAL [None]
  - SUICIDAL IDEATION [None]
